FAERS Safety Report 5292258-4 (Version None)
Quarter: 2007Q2

REPORT INFORMATION
  Report Type: 
  Country: None (occurrence: None)
  Receive Date: 20070410
  Receipt Date: 20070330
  Transmission Date: 20071010
  Serious: No
  Sender: FDA-Public Use
  Company Number: US-KINGPHARMUSA00001-K200700127

PATIENT

DRUGS (8)
  1. ALTACE [Suspect]
     Indication: HYPERTENSION
     Dosage: 2.5 MG, QD
     Route: 048
     Dates: start: 20060630, end: 20060731
  2. DYAZIDE [Concomitant]
     Indication: HYPERTENSION
     Dosage: 1 TAB BID
     Route: 048
  3. ZOCOR [Concomitant]
     Indication: HYPERLIPIDAEMIA
     Dosage: 20 MG, QD
     Route: 048
  4. REACTINE                           /00884301/ [Concomitant]
     Indication: HYPERSENSITIVITY
     Dosage: 20 MG, QD
     Route: 048
  5. CYCLOCORT [Concomitant]
     Dosage: UNK, BID
  6. NORVASC [Concomitant]
     Dosage: 10 MG, QD
  7. ASPIRIN [Concomitant]
     Dosage: 81 MG, QD
  8. VIAGRA                             /01367501/ [Concomitant]
     Dosage: 50 MG, PRN

REACTIONS (1)
  - SUICIDAL IDEATION [None]
